FAERS Safety Report 22238405 (Version 1)
Quarter: 2023Q2

REPORT INFORMATION
  Report Type: Report from Study
  Country: DE (occurrence: DE)
  Receive Date: 20230421
  Receipt Date: 20230421
  Transmission Date: 20230721
  Serious: Yes (Hospitalization)
  Sender: FDA-Public Use
  Company Number: DE-CELLTRION INC.-2023DE008097

PATIENT

DRUGS (5)
  1. BEVACIZUMAB [Suspect]
     Active Substance: BEVACIZUMAB
     Indication: Neoplasm
     Dosage: 15 MG/KG, EVERY 3 WEEKS (ON 29/AUG/2022, LAST DOSE (15 MG/KG) OF CANCER TREATMENT WAS ADMINISTERED P
     Route: 042
     Dates: start: 20220829
  2. PACLITAXEL [Suspect]
     Active Substance: PACLITAXEL
     Indication: Neoplasm
     Dosage: 175 MG/M2, EVERY 3 WEEKS (ON 29/AUG/2022, LAST DOSE OF CANCER TREATMENT WAS ADMINISTERED PRIOR TO AE
     Route: 042
     Dates: start: 20220829
  3. CARBOPLATIN [Suspect]
     Active Substance: CARBOPLATIN
     Indication: Neoplasm
     Dosage: 503 MG, EVERY 3 WEEKS (ON 29/AUG/2022, LAST DOSE (503 MG) OF CANCER TREATMENT WAS ADMINISTERED PRIOR
     Dates: start: 20220829
  4. PANTOPRAZOLE [Concomitant]
     Active Substance: PANTOPRAZOLE
     Dosage: 40 MG, QD
  5. PREGABALIN [Concomitant]
     Active Substance: PREGABALIN
     Dosage: 150 MG, EVERY 0.5 DAY

REACTIONS (3)
  - Dysphagia [Recovered/Resolved]
  - General physical health deterioration [Recovered/Resolved]
  - Off label use [Unknown]

NARRATIVE: CASE EVENT DATE: 20220905
